FAERS Safety Report 10114808 (Version 2)
Quarter: 2015Q1

REPORT INFORMATION
  Report Type: Other
  Country: None (occurrence: US)
  Receive Date: 20140426
  Receipt Date: 20150109
  Transmission Date: 20150720
  Serious: Yes (Hospitalization, Other)
  Sender: FDA-Public Use
  Company Number: US-GSKPPD-2014GSK016022

PATIENT
  Age: 61 Year
  Sex: Male

DRUGS (6)
  1. AVANDIA [Suspect]
     Active Substance: ROSIGLITAZONE MALEATE
     Indication: DIABETES MELLITUS
     Dosage: DATES OF AVANDIA USE COULD NOT BE CONFIRMED IN RECORDS REVIEWED.
     Route: 048
  2. VALSARTAN. [Concomitant]
     Active Substance: VALSARTAN
     Route: 048
  3. NITROGLYCERIN. [Concomitant]
     Active Substance: NITROGLYCERIN
     Route: 060
  4. ASPIRIN EC [Concomitant]
     Active Substance: ASPIRIN
     Route: 048
  5. METOPROLOL [Concomitant]
     Active Substance: METOPROLOL
     Route: 048
  6. LOZOL [Concomitant]
     Active Substance: INDAPAMIDE
     Route: 048

REACTIONS (1)
  - Myocardial infarction [Recovered/Resolved]

NARRATIVE: CASE EVENT DATE: 20100316
